FAERS Safety Report 15081787 (Version 1)
Quarter: 2018Q2

REPORT INFORMATION
  Report Type: Spontaneous
  Country: US (occurrence: US)
  Receive Date: 20180628
  Receipt Date: 20180628
  Transmission Date: 20180711
  Serious: No
  Sender: FDA-Public Use
  Company Number: US-PFIZER INC-2018260322

PATIENT
  Age: 58 Year
  Sex: Female
  Weight: 82.54 kg

DRUGS (6)
  1. GABAPENTIN. [Suspect]
     Active Substance: GABAPENTIN
     Indication: PAIN
     Dosage: 600 MG, 3X/DAY
     Route: 048
  2. GABAPENTIN. [Suspect]
     Active Substance: GABAPENTIN
     Indication: DIABETIC NEUROPATHY
     Dosage: 600 MG, UNK
  3. METFORMIN [Concomitant]
     Active Substance: METFORMIN HYDROCHLORIDE
     Indication: DIABETES MELLITUS
     Dosage: 1000 MG, 2X/DAY
     Route: 048
     Dates: start: 1994
  4. LEVEMIR [Concomitant]
     Active Substance: INSULIN DETEMIR
     Indication: BLOOD INSULIN ABNORMAL
     Dosage: 80 IU, 2X/DAY, (INJECTION IN LEGS, STOMACH, OR SIDE TWICE A DAY)
     Dates: start: 2001
  5. ATENOLOL. [Concomitant]
     Active Substance: ATENOLOL
     Dosage: UNK
     Dates: start: 20180519
  6. ATENOLOL. [Concomitant]
     Active Substance: ATENOLOL
     Indication: CARDIAC MURMUR
     Dosage: 25 MG, 2X/DAY
     Route: 048
     Dates: start: 1991

REACTIONS (3)
  - Fatigue [Unknown]
  - Drug ineffective for unapproved indication [Unknown]
  - Crying [Unknown]
